FAERS Safety Report 25873471 (Version 1)
Quarter: 2025Q4

REPORT INFORMATION
  Report Type: Spontaneous
  Country: JP (occurrence: JP)
  Receive Date: 20251002
  Receipt Date: 20251002
  Transmission Date: 20260117
  Serious: Yes (Death, Other)
  Sender: Phathom Pharmaceuticals
  Company Number: JP-PHATHOM PHARMACEUTICALS INC.-2025PHT02682

PATIENT
  Age: 81 Year
  Sex: Male
  Weight: 52.9 kg

DRUGS (7)
  1. VONOPRAZAN [Suspect]
     Active Substance: VONOPRAZAN
     Indication: Prophylaxis
     Dosage: 20 MG, 1X/DAY
     Route: 065
  2. VONOPRAZAN [Suspect]
     Active Substance: VONOPRAZAN
     Indication: Peptic ulcer
  3. SULFAMETHOXAZOLE\TRIMETHOPRIM [Suspect]
     Active Substance: SULFAMETHOXAZOLE\TRIMETHOPRIM
     Indication: Prophylaxis
     Dosage: UNK
  4. SULFAMETHOXAZOLE\TRIMETHOPRIM [Suspect]
     Active Substance: SULFAMETHOXAZOLE\TRIMETHOPRIM
     Indication: Pneumocystis jirovecii pneumonia
  5. AVACOPAN [Suspect]
     Active Substance: AVACOPAN
     Indication: Microscopic polyangiitis
     Dosage: 60 MG, 1X/DAY
  6. RITUXIMAB [Concomitant]
     Active Substance: RITUXIMAB
  7. PREDNISOLONE [Concomitant]
     Active Substance: PREDNISOLONE

REACTIONS (1)
  - Vanishing bile duct syndrome [Fatal]
